FAERS Safety Report 4990314-9 (Version None)
Quarter: 2006Q2

REPORT INFORMATION
  Report Type: 
  Country: None (occurrence: None)
  Receive Date: 20060503
  Receipt Date: 20060425
  Transmission Date: 20061013
  Serious: Yes (Other)
  Sender: FDA-Public Use
  Company Number: ES-BRISTOL-MYERS SQUIBB COMPANY-13357447

PATIENT
  Age: 32 Year
  Sex: Male

DRUGS (3)
  1. VIDEX TABS 25 MG [Suspect]
     Route: 048
     Dates: start: 20001214, end: 20060302
  2. ZIDOVUDINE [Concomitant]
     Route: 048
     Dates: start: 20001214
  3. INDINIVIR SULFATE [Concomitant]
     Route: 048
     Dates: start: 20001214

REACTIONS (1)
  - GOUT [None]
